FAERS Safety Report 9891180 (Version 1)
Quarter: 2014Q1

REPORT INFORMATION
  Report Type: Spontaneous
  Country: DE (occurrence: DE)
  Receive Date: 20140212
  Receipt Date: 20140212
  Transmission Date: 20141002
  Serious: Yes (Hospitalization)
  Sender: FDA-Public Use
  Company Number: DE-JNJFOC-20140205596

PATIENT
  Age: 74 Year
  Sex: Female
  Weight: 77 kg

DRUGS (11)
  1. XARELTO [Suspect]
     Indication: CEREBROVASCULAR ACCIDENT PROPHYLAXIS
     Route: 048
     Dates: start: 20130807
  2. XARELTO [Suspect]
     Indication: ATRIAL FLUTTER
     Route: 048
     Dates: start: 20130807
  3. ACETYLSALICYLIC ACID [Concomitant]
     Route: 065
  4. SIMVASTATIN [Concomitant]
     Route: 065
  5. AMLODIPINE [Concomitant]
     Route: 065
  6. TORASEMID [Concomitant]
     Route: 065
  7. VALSARTAN [Concomitant]
     Dosage: 160MG/12.5MG
     Route: 065
  8. VALSARTAN [Concomitant]
     Route: 065
  9. AMIODARON [Concomitant]
     Route: 065
  10. METFORMIN [Concomitant]
     Route: 065
  11. BISOHEXAL (BISOPROLOL HEMIFUMARATE) [Concomitant]
     Route: 065

REACTIONS (1)
  - Renal impairment [Recovering/Resolving]
